FAERS Safety Report 7416525-0 (Version None)
Quarter: 2011Q2

REPORT INFORMATION
  Report Type: 
  Country: None (occurrence: None)
  Receive Date: 20110414
  Receipt Date: 20110401
  Transmission Date: 20111010
  Serious: Yes (Other)
  Sender: FDA-Public Use
  Company Number: GB-MYLANLABS-2011S1006794

PATIENT
  Sex: Male

DRUGS (1)
  1. FLUCONAZOLE [Suspect]
     Indication: CANDIDIASIS

REACTIONS (2)
  - DRUG RESISTANCE [None]
  - TRICHOPHYTOSIS [None]
